FAERS Safety Report 19284097 (Version 1)
Quarter: 2021Q2

REPORT INFORMATION
  Report Type: Spontaneous
  Country: US (occurrence: US)
  Receive Date: 20210521
  Receipt Date: 20210521
  Transmission Date: 20210717
  Serious: No
  Sender: FDA-Public Use
  Company Number: US-TAKEDA-2021TUS030925

PATIENT
  Sex: Female
  Weight: 53.2 kg

DRUGS (4)
  1. VITAMIN D NOS [Concomitant]
     Active Substance: VITAMIN D NOS
     Dosage: UNK
  2. NORETHINDRONE [NORETHISTERONE] [Concomitant]
     Active Substance: NORETHINDRONE
     Indication: CONTRACEPTION
     Dosage: UNK
  3. ENTYVIO [Suspect]
     Active Substance: VEDOLIZUMAB
     Indication: CROHN^S DISEASE
     Dosage: 300 MILLIGRAM
     Route: 042
     Dates: start: 20200105
  4. BUDESONIDE. [Concomitant]
     Active Substance: BUDESONIDE
     Dosage: UNK

REACTIONS (5)
  - Dysarthria [Recovered/Resolved]
  - Hypoaesthesia [Recovered/Resolved]
  - Chest discomfort [Recovered/Resolved]
  - Amnesia [Recovered/Resolved]
  - Aphasia [Recovered/Resolved]
